FAERS Safety Report 4639706-8 (Version None)
Quarter: 2005Q2

REPORT INFORMATION
  Report Type: 
  Country: None (occurrence: None)
  Receive Date: 20050418
  Receipt Date: 20050405
  Transmission Date: 20051028
  Serious: Yes (Other)
  Sender: FDA-Public Use
  Company Number: 2005056598

PATIENT
  Sex: Female

DRUGS (1)
  1. DEPO-PROVERA [Suspect]
     Indication: CONTRACEPTION
     Dosage: INTRAMUSCULAR
     Route: 030

REACTIONS (13)
  - ABDOMINAL DISTENSION [None]
  - ABORTION SPONTANEOUS [None]
  - AGGRESSION [None]
  - AMENORRHOEA [None]
  - BREAST PAIN [None]
  - DRUG EXPOSURE DURING PREGNANCY [None]
  - HYPOTHYROIDISM [None]
  - INFERTILITY FEMALE [None]
  - MENORRHAGIA [None]
  - MENTAL IMPAIRMENT [None]
  - MOOD SWINGS [None]
  - PREGNANCY WITH INJECTABLE CONTRACEPTIVE [None]
  - WEIGHT INCREASED [None]
